FAERS Safety Report 8328575-0 (Version None)
Quarter: 2012Q2

REPORT INFORMATION
  Report Type: 
  Country: None (occurrence: None)
  Receive Date: 20120502
  Receipt Date: 20120427
  Transmission Date: 20120825
  Serious: Yes (Death)
  Sender: FDA-Public Use
  Company Number: AU-ASTRAZENECA-2010SE48600

PATIENT
  Age: 86 Year
  Sex: Male

DRUGS (1)
  1. ZOLADEX [Suspect]
     Route: 058
     Dates: start: 20090101

REACTIONS (3)
  - GROIN PAIN [None]
  - PROSTATE CANCER METASTATIC [None]
  - DRUG INEFFECTIVE [None]
